FAERS Safety Report 12838684 (Version 2)
Quarter: 2017Q1

REPORT INFORMATION
  Report Type: Spontaneous
  Country: US (occurrence: US)
  Receive Date: 20161012
  Receipt Date: 20170202
  Transmission Date: 20170428
  Serious: Yes (Other)
  Sender: FDA-Public Use
  Company Number: US-BAYER-2016-192991

PATIENT
  Age: 46 Year
  Sex: Female

DRUGS (31)
  1. AVELOX [Suspect]
     Active Substance: MOXIFLOXACIN HYDROCHLORIDE
     Indication: SINUSITIS
     Dosage: 400 MG, UNK
     Dates: start: 20101201, end: 20101201
  2. CIPRO [Suspect]
     Active Substance: CIPROFLOXACIN HYDROCHLORIDE
     Indication: BRONCHITIS
     Dosage: 500 MG, UNK
     Dates: start: 20070920, end: 20070927
  3. AVELOX [Suspect]
     Active Substance: MOXIFLOXACIN HYDROCHLORIDE
     Indication: INFECTION
     Dosage: 400 MG, UNK
     Dates: start: 20100507, end: 20100513
  4. LEVAQUIN [Suspect]
     Active Substance: LEVOFLOXACIN
     Indication: SINUSITIS
     Dosage: 500 MG, UNK
     Dates: start: 20061102, end: 20061111
  5. LEVAQUIN [Suspect]
     Active Substance: LEVOFLOXACIN
     Indication: ACUTE SINUSITIS
     Dosage: 500 MG, UNK
     Dates: start: 20090527, end: 20090601
  6. PREDNISONE. [Concomitant]
     Active Substance: PREDNISONE
     Indication: NEURALGIA
     Dosage: UNK
  7. LEVAQUIN [Suspect]
     Active Substance: LEVOFLOXACIN
     Indication: INFECTION
     Dosage: 500 MG, UNK
     Dates: start: 20070313, end: 20070319
  8. TRAMADOL. [Concomitant]
     Active Substance: TRAMADOL
     Indication: PAIN
     Dosage: UNK
  9. LEVOTHYROXINE. [Concomitant]
     Active Substance: LEVOTHYROXINE
     Dosage: 50 MCG
  10. XANAX [Concomitant]
     Active Substance: ALPRAZOLAM
     Indication: ANXIETY
     Dosage: 25 MG, BID
  11. AVELOX [Suspect]
     Active Substance: MOXIFLOXACIN HYDROCHLORIDE
     Indication: SINUSITIS
     Dosage: 400 MG, UNK
     Route: 048
     Dates: start: 20080624
  12. CIPRO [Suspect]
     Active Substance: CIPROFLOXACIN HYDROCHLORIDE
     Indication: URINARY TRACT INFECTION
     Dosage: 500 MG, UNK
     Dates: start: 20150129, end: 20150205
  13. LEVAQUIN [Suspect]
     Active Substance: LEVOFLOXACIN
     Indication: ACUTE SINUSITIS
     Dosage: 500 MG, UNK
     Dates: start: 20050408
  14. LEVAQUIN [Suspect]
     Active Substance: LEVOFLOXACIN
     Indication: ACUTE SINUSITIS
     Dosage: 500 MG, UNK
     Dates: start: 20100113
  15. CIPROFLOXACIN HYDROCHLORIDE. [Suspect]
     Active Substance: CIPROFLOXACIN HYDROCHLORIDE
     Indication: INFECTION
     Dosage: 500 MG, UNK
     Dates: start: 20130801, end: 20130807
  16. VICODIN [Concomitant]
     Active Substance: ACETAMINOPHEN\HYDROCODONE BITARTRATE
     Indication: PAIN
     Dosage: UNK
  17. TRAZODONE [Concomitant]
     Active Substance: TRAZODONE HYDROCHLORIDE
     Indication: INSOMNIA
     Dosage: UNK
  18. AVELOX [Suspect]
     Active Substance: MOXIFLOXACIN HYDROCHLORIDE
     Indication: SINUSITIS
     Dosage: 400 MG, UNK
     Dates: start: 20101122
  19. LEVAQUIN [Suspect]
     Active Substance: LEVOFLOXACIN
     Indication: BRONCHITIS
     Dosage: 500 MG, UNK
     Dates: start: 20051210, end: 20051214
  20. LEVAQUIN [Suspect]
     Active Substance: LEVOFLOXACIN
     Indication: RESPIRATORY TRACT INFECTION
     Dosage: 500 MG, UNK
     Dates: start: 20080613
  21. LEVAQUIN [Suspect]
     Active Substance: LEVOFLOXACIN
     Indication: PNEUMONIA
     Dosage: 500 MG, UNK
     Dates: start: 20081103, end: 20081112
  22. CIPROFLOXACIN HYDROCHLORIDE. [Suspect]
     Active Substance: CIPROFLOXACIN HYDROCHLORIDE
     Indication: INFECTION
     Dosage: 500 MG, UNK
     Dates: start: 20140417, end: 20140423
  23. VITAMIN D [Concomitant]
     Active Substance: CHOLECALCIFEROL
     Indication: HYPOVITAMINOSIS
     Dosage: 50000 IU, OW
  24. BETA-LACTAM ANTIBACTERIALS, PENICILLINS [Concomitant]
     Active Substance: PENICILLIN
     Indication: PAIN
     Dosage: UNK
  25. STEROID ANTIBACTERIALS [Concomitant]
     Active Substance: UNSPECIFIED INGREDIENT
     Indication: PAIN
     Dosage: UNK
  26. LEVAQUIN [Suspect]
     Active Substance: LEVOFLOXACIN
     Indication: ACUTE SINUSITIS
     Dosage: 500 MG, UNK
     Dates: start: 20081107, end: 20081116
  27. LEVAQUIN [Suspect]
     Active Substance: LEVOFLOXACIN
     Indication: ACUTE SINUSITIS
     Dosage: 500 MG, UNK
     Dates: start: 20100430, end: 20100506
  28. NORVASC [Concomitant]
     Active Substance: AMLODIPINE BESYLATE
     Indication: HYPERTENSION
     Dosage: 5 MG, BID
  29. LOSARTAN. [Concomitant]
     Active Substance: LOSARTAN
     Indication: HYPERTENSION
     Dosage: 50 MG, UNK
  30. TOPIRAMATE. [Concomitant]
     Active Substance: TOPIRAMATE
     Indication: NEURALGIA
     Dosage: UNK
  31. DOXYCYCLINE HYCLATE. [Concomitant]
     Active Substance: DOXYCYCLINE HYCLATE
     Dosage: 100 MG, BID

REACTIONS (4)
  - Neuropathy peripheral [Not Recovered/Not Resolved]
  - Physical disability [None]
  - Peripheral nerve injury [Not Recovered/Not Resolved]
  - Pain [Not Recovered/Not Resolved]

NARRATIVE: CASE EVENT DATE: 20101122
